FAERS Safety Report 14077050 (Version 1)
Quarter: 2017Q4

REPORT INFORMATION
  Report Type: Spontaneous
  Country: SA (occurrence: SA)
  Receive Date: 20171012
  Receipt Date: 20171012
  Transmission Date: 20180321
  Serious: Yes (Other)
  Sender: FDA-Public Use
  Company Number: SA-CIPLA LTD.-2017SA18020

PATIENT

DRUGS (4)
  1. FLUOXETINE [Interacting]
     Active Substance: FLUOXETINE HYDROCHLORIDE
     Dosage: UNK
     Route: 065
  2. OLANZAPINE. [Suspect]
     Active Substance: OLANZAPINE
     Dosage: UNK
     Route: 065
  3. LINEZOLID. [Interacting]
     Active Substance: LINEZOLID
     Dosage: UNK
     Route: 065
  4. METOCLOPRAMIDE. [Interacting]
     Active Substance: METOCLOPRAMIDE
     Dosage: UNK
     Route: 065

REACTIONS (3)
  - Serotonin syndrome [Unknown]
  - Drug interaction [Unknown]
  - Neuroleptic malignant syndrome [Unknown]
